FAERS Safety Report 10399164 (Version 1)
Quarter: 2014Q3

REPORT INFORMATION
  Report Type: Spontaneous
  Country: US (occurrence: None)
  Receive Date: 20140818
  Receipt Date: 20140818
  Transmission Date: 20150326
  Serious: Yes (Disabling)
  Sender: FDA-Public Use
  Company Number: None

PATIENT
  Age: 61 Year
  Sex: Female
  Weight: 68.04 kg

DRUGS (1)
  1. LYRICA [Suspect]
     Active Substance: PREGABALIN
     Route: 048

REACTIONS (6)
  - Diarrhoea [None]
  - Paraesthesia [None]
  - Nausea [None]
  - Eating disorder [None]
  - Impaired work ability [None]
  - Thermal burn [None]

NARRATIVE: CASE EVENT DATE: 20140817
